FAERS Safety Report 13051369 (Version 1)
Quarter: 2016Q4

REPORT INFORMATION
  Report Type: Spontaneous
  Country: US (occurrence: US)
  Receive Date: 20161221
  Receipt Date: 20161221
  Transmission Date: 20170207
  Serious: Yes (Disabling, Other)
  Sender: FDA-Public Use
  Company Number: None

PATIENT
  Age: 59 Year
  Sex: Female
  Weight: 54 kg

DRUGS (3)
  1. VITAMIN D [Concomitant]
     Active Substance: CHOLECALCIFEROL
  2. VITAMIN B [Concomitant]
     Active Substance: VITAMIN B
  3. PROLIA [Suspect]
     Active Substance: DENOSUMAB
     Indication: OSTEOPOROSIS
     Dosage: ?          OTHER FREQUENCY:6 MONTHS;?
     Route: 058
     Dates: start: 20160720, end: 20160720

REACTIONS (9)
  - Inflammation [None]
  - Abscess [None]
  - Condition aggravated [None]
  - Erythema [None]
  - Cellulitis [None]
  - Breast mass [None]
  - Influenza like illness [None]
  - Lymphadenopathy [None]
  - Infection [None]

NARRATIVE: CASE EVENT DATE: 20161123
